FAERS Safety Report 7000239-5 (Version None)
Quarter: 2010Q3

REPORT INFORMATION
  Report Type: 
  Country: None (occurrence: None)
  Receive Date: 20100920
  Receipt Date: 20071116
  Transmission Date: 20110219
  Serious: Yes (Other)
  Sender: FDA-Public Use
  Company Number: US-ASTRAZENECA-2006UW23730

PATIENT
  Age: 44 Year
  Sex: Female
  Weight: 138.3 kg

DRUGS (19)
  1. SEROQUEL [Suspect]
     Indication: BIPOLAR DISORDER
     Dosage: 25-400 MG
     Route: 048
     Dates: start: 20020925
  2. SEROQUEL [Suspect]
     Indication: SCHIZOPHRENIA
     Dosage: 25-400 MG
     Route: 048
     Dates: start: 20020925
  3. SEROQUEL [Suspect]
     Indication: DEPRESSION
     Dosage: 25-400 MG
     Route: 048
     Dates: start: 20020925
  4. SEROQUEL [Suspect]
     Route: 048
     Dates: start: 20051201
  5. SEROQUEL [Suspect]
     Route: 048
     Dates: start: 20051201
  6. SEROQUEL [Suspect]
     Route: 048
     Dates: start: 20051201
  7. ABILIFY [Concomitant]
     Dates: start: 20070401
  8. GEODON [Concomitant]
     Dates: start: 20041201, end: 20051101
  9. PAXIL [Concomitant]
     Dates: start: 20041201, end: 20051101
  10. ATIVAN [Concomitant]
     Dates: start: 20041201, end: 20051101
  11. XANAX [Concomitant]
     Dates: start: 20041201, end: 20051101
  12. DEPAKOTE [Concomitant]
     Dates: start: 20041201, end: 20051101
  13. LITHIUM CARBONATE [Concomitant]
     Dosage: 300-600 MG DISPENSED
     Dates: start: 20020801
  14. DESIPRAMINE HCL [Concomitant]
     Dosage: 75 MG DISPENSED
     Dates: start: 20020703
  15. DIPHENHYDRAM [Concomitant]
     Dosage: 50 MG DISPENSED
     Dates: start: 20020801
  16. CELEXA [Concomitant]
     Dosage: 20 MG DISPENSED
     Dates: start: 20020925
  17. ATENOLOL [Concomitant]
     Dates: start: 20001028
  18. TRIAMTERENE AND HYDROCHLOROTHIAZIDE [Concomitant]
     Dosage: 37.5-25 DISPENSED
     Dates: start: 20010126
  19. AMARYL [Concomitant]
     Dosage: 4-8 MG
     Dates: start: 20011212

REACTIONS (3)
  - DIABETES MELLITUS [None]
  - DIABETES MELLITUS INADEQUATE CONTROL [None]
  - DIABETIC KETOACIDOSIS [None]
